FAERS Safety Report 9412202 (Version 1)
Quarter: 2013Q3

REPORT INFORMATION
  Report Type: Spontaneous
  Country: US (occurrence: US)
  Receive Date: 20130722
  Receipt Date: 20130722
  Transmission Date: 20140515
  Serious: No
  Sender: FDA-Public Use
  Company Number: US-UPSHER-SMITH LABORATORIES, INC.-13002349

PATIENT
  Age: 69 Year
  Sex: Female

DRUGS (5)
  1. FORTICAL [Suspect]
     Indication: OSTEOPOROSIS
     Dosage: 200 IU, QD
     Route: 045
     Dates: start: 200709
  2. RANITIDINE [Concomitant]
     Dosage: UNK
  3. ASPIRIN [Concomitant]
     Dosage: UNK
  4. VITAMIN D                          /00107901/ [Concomitant]
     Dosage: UNK
  5. GLUCOSAMINE [Concomitant]
     Dosage: UNK

REACTIONS (2)
  - Angioedema [Not Recovered/Not Resolved]
  - Rash pruritic [Not Recovered/Not Resolved]
